FAERS Safety Report 13511517 (Version 1)
Quarter: 2017Q2

REPORT INFORMATION
  Report Type: Not Available
  Country: CN (occurrence: CN)
  Receive Date: 20170504
  Receipt Date: 20170504
  Transmission Date: 20170830
  Serious: Yes (Other)
  Sender: FDA-Public Use
  Company Number: CN-ARALEZ PHARMACEUTICALS RD INC.-ARA-TP-CN-2017-368

PATIENT
  Age: 91 Year
  Sex: Female
  Weight: 54 kg

DRUGS (5)
  1. PRAVASTATIN SODIUM. [Suspect]
     Active Substance: PRAVASTATIN SODIUM
     Indication: CORONARY ARTERY DISEASE
     Route: 065
     Dates: start: 20150521, end: 20161103
  2. AMLODIPINE BESYLATE. [Suspect]
     Active Substance: AMLODIPINE BESYLATE
     Indication: HYPERTENSION
     Route: 065
     Dates: start: 20150521, end: 20161103
  3. METOPROLOL SUCCINATE. [Suspect]
     Active Substance: METOPROLOL SUCCINATE
     Indication: CORONARY ARTERY DISEASE
     Route: 048
     Dates: start: 20150521, end: 20161115
  4. BENAZEPRIL HYDROCHLORIDE. [Suspect]
     Active Substance: BENAZEPRIL HYDROCHLORIDE
     Indication: HYPERTENSION
     Route: 065
     Dates: start: 20150521, end: 20161103
  5. TRIMETAZIDINE DIHYDROCHLORIDE [Suspect]
     Active Substance: TRIMETAZIDINE DIHYDROCHLORIDE
     Indication: CORONARY ARTERY DISEASE
     Route: 065
     Dates: start: 20150521, end: 20161103

REACTIONS (5)
  - Bronchitis chronic [Unknown]
  - Anaemia [Unknown]
  - Sinus bradycardia [Unknown]
  - Blood potassium increased [None]
  - Chronic kidney disease [Unknown]

NARRATIVE: CASE EVENT DATE: 201611
